FAERS Safety Report 17324022 (Version 5)
Quarter: 2021Q4

REPORT INFORMATION
  Report Type: Other
  Country: US (occurrence: None)
  Receive Date: 20200127
  Receipt Date: 20211130
  Transmission Date: 20220303
  Serious: Yes (Hospitalization, Other)
  Sender: FDA-Public Use
  Company Number: US-ROCHE-2525168

PATIENT
  Age: 66 Year
  Sex: Female
  Weight: 49.940 kg

DRUGS (11)
  1. OCREVUS [Suspect]
     Active Substance: OCRELIZUMAB
     Indication: Progressive multiple sclerosis
     Route: 042
     Dates: start: 2018
  2. OCREVUS [Suspect]
     Active Substance: OCRELIZUMAB
     Indication: Relapsing multiple sclerosis
     Route: 042
     Dates: start: 20190620, end: 20210204
  3. NAPROXEN [Suspect]
     Active Substance: NAPROXEN
     Indication: Back pain
     Route: 065
  4. NAPROXEN [Suspect]
     Active Substance: NAPROXEN
     Indication: Neck pain
  5. SYNTHROID [Concomitant]
     Active Substance: LEVOTHYROXINE SODIUM
     Indication: Hypothyroidism
     Route: 048
  6. PEPCID [Concomitant]
     Active Substance: FAMOTIDINE
     Route: 048
  7. MIDODRINE [Concomitant]
     Active Substance: MIDODRINE
     Indication: Stress cardiomyopathy
     Dates: start: 2016
  8. AMITIZA [Concomitant]
     Active Substance: LUBIPROSTONE
     Route: 048
  9. GABAPENTIN [Concomitant]
     Active Substance: GABAPENTIN
  10. DEMEROL [Concomitant]
     Active Substance: MEPERIDINE HYDROCHLORIDE
     Indication: Pain
     Route: 048
     Dates: start: 2014
  11. TRAMADOL [Concomitant]
     Active Substance: TRAMADOL
     Indication: Pain
     Route: 048

REACTIONS (10)
  - Urinary tract infection [Recovered/Resolved]
  - Ulcer haemorrhage [Unknown]
  - Pyrexia [Recovered/Resolved]
  - Joint injury [Recovered/Resolved]
  - Abdominal pain upper [Unknown]
  - Weight decreased [Unknown]
  - Urinary tract infection [Recovered/Resolved]
  - Cervical vertebral fracture [Unknown]
  - Fall [Recovered/Resolved]
  - Rib fracture [Unknown]

NARRATIVE: CASE EVENT DATE: 20191201
